FAERS Safety Report 19125357 (Version 1)
Quarter: 2021Q2

REPORT INFORMATION
  Report Type: Spontaneous
  Country: CN (occurrence: CN)
  Receive Date: 20210412
  Receipt Date: 20210412
  Transmission Date: 20210717
  Serious: Yes (Other)
  Sender: FDA-Public Use
  Company Number: CN-PFIZER INC-2021361442

PATIENT
  Age: 61 Year
  Sex: Female
  Weight: 55 kg

DRUGS (1)
  1. CYTOSAR [Suspect]
     Active Substance: CYTARABINE
     Indication: ACUTE MYELOID LEUKAEMIA
     Dosage: 3 G, 2X/DAY
     Route: 041
     Dates: start: 20210226, end: 20210228

REACTIONS (3)
  - Malnutrition [Unknown]
  - Diarrhoea [Recovered/Resolved]
  - Enteritis infectious [Unknown]

NARRATIVE: CASE EVENT DATE: 20210302
